FAERS Safety Report 6202003-3 (Version None)
Quarter: 2009Q2

REPORT INFORMATION
  Report Type: 
  Country: None (occurrence: None)
  Receive Date: 20090526
  Receipt Date: 20090515
  Transmission Date: 20091009
  Serious: Yes (Hospitalization)
  Sender: FDA-Public Use
  Company Number: A0785689A

PATIENT
  Age: 68 Year
  Sex: Male
  Weight: 70.5 kg

DRUGS (1)
  1. AVANDIA [Suspect]
     Dosage: 4MG TWICE PER DAY
     Route: 048
     Dates: start: 20060310, end: 20070401

REACTIONS (5)
  - ANGINA UNSTABLE [None]
  - DYSPNOEA [None]
  - OEDEMA [None]
  - PULMONARY ARTERIAL HYPERTENSION [None]
  - RENAL DISORDER [None]
